FAERS Safety Report 9763077 (Version 1)
Quarter: 2013Q4

REPORT INFORMATION
  Report Type: Spontaneous
  Country: US (occurrence: US)
  Receive Date: 20131216
  Receipt Date: 20131216
  Transmission Date: 20140711
  Serious: No
  Sender: FDA-Public Use
  Company Number: US-BIOGENIDEC-2013BI106335

PATIENT
  Age: 37 Year
  Sex: Female

DRUGS (7)
  1. TECFIDERA [Suspect]
     Indication: MULTIPLE SCLEROSIS
     Route: 048
     Dates: start: 201307
  2. PREDNISONE [Concomitant]
  3. NITROFURANTOIN MCR [Concomitant]
  4. OXYBUTYNIN [Concomitant]
  5. CALCIUM [Concomitant]
  6. CVS VITAMIN E [Concomitant]
  7. VITAMIN B12 [Concomitant]

REACTIONS (1)
  - Flushing [Unknown]
